FAERS Safety Report 8835688 (Version 1)
Quarter: 2012Q4

REPORT INFORMATION
  Report Type: Report from Study
  Country: CA (occurrence: CA)
  Receive Date: 20121011
  Receipt Date: 20121011
  Transmission Date: 20130627
  Serious: Yes (Hospitalization, Disabling)
  Sender: FDA-Public Use
  Company Number: CA-JNJFOC-20121002710

PATIENT
  Age: 39 None
  Sex: Male
  Weight: 82.3 kg

DRUGS (1)
  1. REMICADE [Suspect]
     Indication: CROHN^S DISEASE
     Route: 042
     Dates: start: 20090313

REACTIONS (3)
  - Surgery [Unknown]
  - Abscess [Unknown]
  - Debridement [Unknown]
